FAERS Safety Report 5465577-6 (Version None)
Quarter: 2007Q3

REPORT INFORMATION
  Report Type: 
  Country: None (occurrence: None)
  Receive Date: 20070924
  Receipt Date: 19940822
  Transmission Date: 20080115
  Serious: Yes (Other)
  Sender: FDA-Public Use
  Company Number: FR-PFIZER INC-2006122755

PATIENT
  Sex: Male

DRUGS (2)
  1. IRINOTECAN HCL [Suspect]
     Indication: RESPIRATORY TRACT CARCINOMA IN SITU
     Dosage: DAILY DOSE:700MG-FREQ:EVERY 3 WEEKS
     Route: 042
     Dates: start: 19940817, end: 19940817
  2. AMIODARONE HCL [Concomitant]

REACTIONS (2)
  - ARRHYTHMIA [None]
  - VOMITING [None]
